FAERS Safety Report 10155335 (Version 1)
Quarter: 2014Q2

REPORT INFORMATION
  Report Type: Spontaneous
  Country: US (occurrence: None)
  Receive Date: 20140505
  Receipt Date: 20140505
  Transmission Date: 20141212
  Serious: Yes (Life-Threatening)
  Sender: FDA-Public Use
  Company Number: None

PATIENT
  Sex: Female

DRUGS (1)
  1. TROKENDI XR [Suspect]
     Indication: EPILEPSY

REACTIONS (2)
  - Product substitution issue [None]
  - Convulsion [None]
